FAERS Safety Report 7001166-X (Version None)
Quarter: 2010Q3

REPORT INFORMATION
  Report Type: 
  Country: None (occurrence: None)
  Receive Date: 20100920
  Receipt Date: 20100115
  Transmission Date: 20110219
  Serious: Yes (Other)
  Sender: FDA-Public Use
  Company Number: US-ASTRAZENECA-2009SE20276

PATIENT
  Age: 44 Year
  Sex: Female
  Weight: 122.5 kg

DRUGS (15)
  1. SEROQUEL [Suspect]
     Indication: DEPRESSION
     Route: 048
     Dates: start: 19991207
  2. SEROQUEL [Suspect]
     Route: 048
     Dates: start: 20010101, end: 20040101
  3. ABILIFY [Concomitant]
  4. CLOZARIL [Concomitant]
  5. RISPERDAL [Concomitant]
  6. THORAZINE [Concomitant]
  7. EFFEXOR XR [Concomitant]
     Dosage: 150 MG THREE TIMES A DAY, 200 MG 1 QD
     Route: 048
     Dates: start: 20001229
  8. ACETAMINOPHEN/COD [Concomitant]
     Indication: PAIN
     Dosage: 1 TABLET EVERY 4 HOURS AS NEEDED
     Route: 048
     Dates: start: 20000327
  9. CLONAZEPAM [Concomitant]
     Dosage: 0.5 MG AT BED TIME AS NEEDED
     Route: 048
     Dates: start: 20000224
  10. TRAZODONE HCL [Concomitant]
     Dosage: 100 MG  TO 300 MG.
     Route: 048
     Dates: start: 19991207
  11. NEURONTIN [Concomitant]
     Route: 048
     Dates: start: 20010406
  12. SYNTHROID [Concomitant]
     Route: 048
     Dates: start: 20010406
  13. CELEXA [Concomitant]
     Route: 048
     Dates: start: 20010406
  14. ALBUTEROL [Concomitant]
     Indication: BRONCHOSPASM
     Dosage: 4 MG 1TO 2 TAB BID PRN
     Route: 048
     Dates: start: 20010406
  15. ALBUTEROL [Concomitant]
     Indication: WHEEZING
     Dosage: 4 MG 1TO 2 TAB BID PRN
     Route: 048
     Dates: start: 20010406

REACTIONS (3)
  - DIABETES MELLITUS [None]
  - PANCREATITIS [None]
  - TYPE 2 DIABETES MELLITUS [None]
